FAERS Safety Report 7077285-9 (Version None)
Quarter: 2010Q4

REPORT INFORMATION
  Report Type: 
  Country: None (occurrence: None)
  Receive Date: 20101029
  Receipt Date: 20101029
  Transmission Date: 20110411
  Serious: Yes (Hospitalization)
  Sender: FDA-Public Use
  Company Number: None

PATIENT
  Sex: Female
  Weight: 96.82 kg

DRUGS (2)
  1. CARBOPLATIN [Suspect]
     Dosage: 689 MG
     Dates: end: 20101008
  2. TAXOL [Suspect]
     Dosage: 160 MG
     Dates: end: 20101008

REACTIONS (2)
  - LUNG CONSOLIDATION [None]
  - PLEURAL EFFUSION [None]
